FAERS Safety Report 5756628-X (Version None)
Quarter: 2008Q2

REPORT INFORMATION
  Report Type: 
  Country: None (occurrence: None)
  Receive Date: 20080528
  Receipt Date: 20080509
  Transmission Date: 20081010
  Serious: Yes (Death, Hospitalization)
  Sender: FDA-Public Use
  Company Number: 2008AL004519

PATIENT
  Age: 79 Year
  Sex: Female

DRUGS (10)
  1. DIGOXIN [Suspect]
     Indication: ATRIAL FIBRILLATION
     Dosage: 0.25 MG, DAILY, PO
     Route: 048
  2. MIRTAZAPINE [Concomitant]
  3. PLAVIX [Concomitant]
  4. ASPIRIN [Concomitant]
  5. LEVOTHYROXINE SODIUM [Concomitant]
  6. KLOR-CON [Concomitant]
  7. PROTONIX [Concomitant]
  8. TOPROL-XL [Concomitant]
  9. NITROGLYCERIN [Concomitant]
  10. LISINOPRIL [Concomitant]

REACTIONS (2)
  - HYPOTENSION [None]
  - PNEUMONIA [None]
